FAERS Safety Report 5817198-0 (Version None)
Quarter: 2008Q3

REPORT INFORMATION
  Report Type: 
  Country: None (occurrence: None)
  Receive Date: 20080722
  Receipt Date: 20080711
  Transmission Date: 20090109
  Serious: Yes (Life-Threatening)
  Sender: FDA-Public Use
  Company Number: NO-BAYER-200822259GPV

PATIENT
  Age: 78 Year
  Sex: Male

DRUGS (1)
  1. ULTRAVIST (PHARMACY BULK) [Suspect]
     Indication: X-RAY GASTROINTESTINAL TRACT
     Route: 042
     Dates: start: 20080627, end: 20080627

REACTIONS (6)
  - ANAPHYLACTIC REACTION [None]
  - HYPOTENSION [None]
  - RESPIRATORY ARREST [None]
  - SNEEZING [None]
  - URINARY INCONTINENCE [None]
  - VISUAL IMPAIRMENT [None]
